FAERS Safety Report 5050337-0 (Version None)
Quarter: 2006Q3

REPORT INFORMATION
  Report Type: 
  Country: None (occurrence: None)
  Receive Date: 20060707
  Receipt Date: 20060622
  Transmission Date: 20061208
  Serious: Yes (Hospitalization)
  Sender: FDA-Public Use
  Company Number: 224091

PATIENT
  Age: 64 Year
  Sex: Male

DRUGS (2)
  1. RAPTIVA [Suspect]
     Indication: PSORIASIS
     Dosage: 0.9 , 1/WEEK
     Dates: start: 20041221, end: 20060313
  2. GLIMEPIRIDE [Concomitant]

REACTIONS (15)
  - CONDITION AGGRAVATED [None]
  - DIABETES MELLITUS NON-INSULIN-DEPENDENT [None]
  - DIPLOPIA [None]
  - DYSSTASIA [None]
  - GAIT DISTURBANCE [None]
  - GUILLAIN-BARRE SYNDROME [None]
  - HYPOAESTHESIA [None]
  - MUSCLE SPASMS [None]
  - NERVE ROOT LESION [None]
  - NEURITIS [None]
  - NEUROPATHY [None]
  - PARALYSIS [None]
  - PARAPARESIS [None]
  - PSORIASIS [None]
  - SUPRAVENTRICULAR EXTRASYSTOLES [None]
